FAERS Safety Report 5018292-7 (Version None)
Quarter: 2006Q2

REPORT INFORMATION
  Report Type: 
  Country: None (occurrence: None)
  Receive Date: 20060530
  Receipt Date: 20060517
  Transmission Date: 20061013
  Serious: Yes (Hospitalization, Other)
  Sender: FDA-Public Use
  Company Number: 2006065650

PATIENT
  Age: 55 Year
  Sex: Male

DRUGS (7)
  1. LIPITOR [Suspect]
     Indication: ILL-DEFINED DISORDER
     Dosage: 20 MG (20 MG, DAILY), ORAL
     Route: 048
  2. ALTACE [Concomitant]
  3. METOPROLOL SUCCINATE [Concomitant]
  4. ASPIRIN [Concomitant]
  5. PLAVIX [Concomitant]
  6. NITROGLYCERIN [Concomitant]
  7. VICODIN [Concomitant]

REACTIONS (24)
  - ADVERSE DRUG REACTION [None]
  - ANGINA PECTORIS [None]
  - BAND NEUTROPHIL COUNT INCREASED [None]
  - CELLULITIS [None]
  - CHILLS [None]
  - DEHYDRATION [None]
  - DIARRHOEA [None]
  - DILATATION ATRIAL [None]
  - DISEASE PROGRESSION [None]
  - HYPERHIDROSIS [None]
  - INJURY [None]
  - MITRAL VALVE INCOMPETENCE [None]
  - MONOPLEGIA [None]
  - MYOCARDIAL ISCHAEMIA [None]
  - MYOSITIS [None]
  - OEDEMA PERIPHERAL [None]
  - ORAL INTAKE REDUCED [None]
  - PULMONARY VALVE INCOMPETENCE [None]
  - PYREXIA [None]
  - RASH MACULO-PAPULAR [None]
  - RENAL DISORDER [None]
  - RHABDOMYOLYSIS [None]
  - SHOCK [None]
  - TREMOR [None]
